FAERS Safety Report 8906252 (Version 1)
Quarter: 2012Q4

REPORT INFORMATION
  Report Type: Spontaneous
  Country: US (occurrence: None)
  Receive Date: 20121112
  Receipt Date: 20121112
  Transmission Date: 20130627
  Serious: Yes (Other)
  Sender: FDA-Public Use
  Company Number: None

PATIENT
  Age: 39 Year
  Sex: Female
  Weight: 86.18 kg

DRUGS (1)
  1. BARIUM SULFATE [Suspect]
     Indication: PHEOCHROMOCYTOMA
     Dosage: 2 botles, 12 hours apart, po
     Route: 048
     Dates: start: 20121108, end: 20121109

REACTIONS (2)
  - Gastrointestinal pain [None]
  - Diarrhoea [None]
